FAERS Safety Report 5212021-X (Version None)
Quarter: 2007Q1

REPORT INFORMATION
  Report Type: 
  Country: None (occurrence: None)
  Receive Date: 20070118
  Receipt Date: 20070110
  Transmission Date: 20070707
  Serious: Yes (Hospitalization, Other)
  Sender: FDA-Public Use
  Company Number: US-AVENTIS-200618618US

PATIENT
  Sex: Female
  Weight: 56.81 kg

DRUGS (9)
  1. LANTUS [Suspect]
     Indication: DIABETES MELLITUS
     Dates: start: 20061016
  2. OPTICLIK (INSULIN INJECTION PEN) [Suspect]
     Dates: start: 20061016
  3. TOPROL-XL [Concomitant]
     Dosage: DOSE: UNKNOWN
  4. XANAX [Concomitant]
     Dosage: DOSE: UNKNOWN
  5. LITHIUM CARBONATE [Concomitant]
     Dosage: DOSE: UNKNOWN
  6. PROTONIX [Concomitant]
     Dosage: DOSE: UNKNOWN
  7. ASPIRIN [Concomitant]
     Dosage: DOSE: UNKNOWN
  8. SIMVASTATIN [Concomitant]
     Dosage: DOSE: UNKNOWN
  9. METARAL NOS [Concomitant]

REACTIONS (8)
  - ABNORMAL BEHAVIOUR [None]
  - BLOOD GLUCOSE FLUCTUATION [None]
  - BLOOD GLUCOSE INCREASED [None]
  - DRUG INEFFECTIVE [None]
  - FATIGUE [None]
  - HYPOGLYCAEMIA [None]
  - MENTAL DISORDER [None]
  - OVERDOSE [None]
